FAERS Safety Report 12377626 (Version 1)
Quarter: 2016Q2

REPORT INFORMATION
  Report Type: Spontaneous
  Country: US (occurrence: US)
  Receive Date: 20160517
  Receipt Date: 20160517
  Transmission Date: 20160815
  Serious: No
  Sender: FDA-Public Use
  Company Number: US-JNJFOC-20160424558

PATIENT
  Age: 70 Year
  Sex: Female

DRUGS (1)
  1. VISINE (UNSPECIFIED) [Suspect]
     Active Substance: TETRAHYDROZOLINE HYDROCHLORIDE
     Indication: EYE ALLERGY
     Dosage: PER EYE, WHEN NEEDED
     Route: 047

REACTIONS (4)
  - Wrong technique in product usage process [Unknown]
  - Therapeutic response unexpected [Unknown]
  - Product use issue [Unknown]
  - Off label use [Unknown]
